FAERS Safety Report 5777100-7 (Version None)
Quarter: 2008Q2

REPORT INFORMATION
  Report Type: 
  Country: None (occurrence: None)
  Receive Date: 20080617
  Receipt Date: 20080617
  Transmission Date: 20081010
  Serious: Yes (Life-Threatening)
  Sender: FDA-Public Use
  Company Number: None

PATIENT
  Age: 84 Year
  Sex: Female
  Weight: 55 kg

DRUGS (6)
  1. DIPHENHYDRAMINE HCL [Suspect]
     Indication: PRURITUS
     Dosage: 12.5 MG IV OTO
     Route: 042
     Dates: start: 20080220
  2. ERYTHROMYCIN [Concomitant]
  3. VANCOMYCIN [Concomitant]
  4. RANITIDINE HCL [Concomitant]
  5. METRONIDAZOLE HCL [Concomitant]
  6. INSULIN [Concomitant]

REACTIONS (1)
  - OXYGEN SATURATION DECREASED [None]
